FAERS Safety Report 7355932-1 (Version None)
Quarter: 2011Q1

REPORT INFORMATION
  Report Type: 
  Country: None (occurrence: None)
  Receive Date: 20110316
  Receipt Date: 20110228
  Transmission Date: 20110831
  Serious: Yes (Disabling)
  Sender: FDA-Public Use
  Company Number: US-DENTSPLY-2011-0025-EUR

PATIENT
  Age: 71 Year
  Sex: Male

DRUGS (5)
  1. BUPIVACAINE HCL [Suspect]
  2. BUPIVACAINE HCL [Suspect]
  3. EPINEPHRINE [Suspect]
  4. XYLOCAINE DENTAL [Suspect]
  5. FENTANYL [Suspect]

REACTIONS (3)
  - NEUROPATHY PERIPHERAL [None]
  - HYPOAESTHESIA [None]
  - MUSCULAR WEAKNESS [None]
